FAERS Safety Report 8044695-2 (Version None)
Quarter: 2012Q1

REPORT INFORMATION
  Report Type: 
  Country: None (occurrence: None)
  Receive Date: 20120113
  Receipt Date: 20120103
  Transmission Date: 20120608
  Serious: Yes (Death)
  Sender: FDA-Public Use
  Company Number: US-PURDUE-USA-2012-0080441

PATIENT
  Age: 23 Year
  Sex: Male

DRUGS (2)
  1. BUTRANS [Suspect]
     Indication: DRUG WITHDRAWAL SYNDROME
     Dosage: 5 MCG, Q1H
  2. VICODIN [Suspect]
     Indication: PRODUCT USED FOR UNKNOWN INDICATION

REACTIONS (1)
  - DEATH [None]
